FAERS Safety Report 12932807 (Version 1)
Quarter: 2016Q4

REPORT INFORMATION
  Report Type: Spontaneous
  Country: US (occurrence: US)
  Receive Date: 20161111
  Receipt Date: 20161111
  Transmission Date: 20170207
  Serious: No
  Sender: FDA-Public Use
  Company Number: US-PFIZER INC-2016520633

PATIENT
  Sex: Female

DRUGS (4)
  1. TYLENOL [Concomitant]
     Active Substance: ACETAMINOPHEN
     Dosage: TAKES 1-2
  2. TRAMADOL. [Concomitant]
     Active Substance: TRAMADOL
  3. LYRICA [Suspect]
     Active Substance: PREGABALIN
     Indication: HERNIA
     Dosage: 50 MG, 1X/DAY, AT NIGHTTIME
     Dates: start: 2016, end: 2016
  4. LYRICA [Suspect]
     Active Substance: PREGABALIN
     Dosage: 25 MG, 1X/DAY, AT NIGHT
     Dates: start: 2016

REACTIONS (3)
  - Weight increased [Unknown]
  - Dizziness [Unknown]
  - Somnolence [Unknown]

NARRATIVE: CASE EVENT DATE: 2016
